FAERS Safety Report 7648922-2 (Version None)
Quarter: 2011Q3

REPORT INFORMATION
  Report Type: 
  Country: None (occurrence: None)
  Receive Date: 20110801
  Receipt Date: 20110726
  Transmission Date: 20111222
  Serious: Yes (Hospitalization, Other)
  Sender: FDA-Public Use
  Company Number: US-RB-028355-11

PATIENT
  Age: 72 Year
  Sex: Male

DRUGS (2)
  1. SUBOXONE [Suspect]
     Indication: PRODUCT USED FOR UNKNOWN INDICATION
     Dosage: SUBLINGUAL FILM; DOSING INFORMATION UNKNOWN
     Route: 065
  2. SUBOXONE [Suspect]
     Indication: DRUG DEPENDENCE
     Dosage: VARIED DOSING, CURRENTLY 10MG DAILY
     Route: 060
     Dates: start: 20070101

REACTIONS (9)
  - DYSPNOEA [None]
  - CONDITION AGGRAVATED [None]
  - THERAPEUTIC RESPONSE DECREASED [None]
  - DECREASED APPETITE [None]
  - INSOMNIA [None]
  - DRUG WITHDRAWAL SYNDROME [None]
  - RIB FRACTURE [None]
  - GASTRIC CANCER [None]
  - SUBSTANCE ABUSE [None]
